FAERS Safety Report 15398434 (Version 2)
Quarter: 2018Q4

REPORT INFORMATION
  Report Type: Report from Study
  Country: US (occurrence: US)
  Receive Date: 20180918
  Receipt Date: 20181115
  Transmission Date: 20190204
  Serious: Yes (Other)
  Sender: FDA-Public Use
  Company Number: US-ACTELION-A-NJ2018-178816

PATIENT
  Age: 53 Year
  Sex: Female

DRUGS (10)
  1. LASIX [Concomitant]
     Active Substance: FUROSEMIDE
  2. VITAMIN B12 [Concomitant]
     Active Substance: CYANOCOBALAMIN
  3. ZOFRAN [Concomitant]
     Active Substance: ONDANSETRON HYDROCHLORIDE
  4. REMODULIN [Concomitant]
     Active Substance: TREPROSTINIL
  5. OPSUMIT [Suspect]
     Active Substance: MACITENTAN
     Indication: PULMONARY ARTERIAL HYPERTENSION
     Dosage: 10 MG, QD
     Route: 048
     Dates: start: 201609
  6. FERROUS SULFATE. [Concomitant]
     Active Substance: FERROUS SULFATE
  7. WARFARIN [Concomitant]
     Active Substance: WARFARIN
  8. METOPROLOL. [Concomitant]
     Active Substance: METOPROLOL
  9. GABAPENTIN. [Concomitant]
     Active Substance: GABAPENTIN
  10. COLACE [Concomitant]
     Active Substance: DOCUSATE SODIUM

REACTIONS (3)
  - Musculoskeletal pain [Unknown]
  - Arthritis [Unknown]
  - Arthralgia [Unknown]

NARRATIVE: CASE EVENT DATE: 20180825
